FAERS Safety Report 8729492 (Version 2)
Quarter: 2012Q4

REPORT INFORMATION
  Report Type: Report from Study
  Country: US (occurrence: US)
  Receive Date: 20120817
  Receipt Date: 20120830
  Transmission Date: 20130627
  Serious: Yes (Other)
  Sender: FDA-Public Use
  Company Number: US-ABBOTT-12P-163-0966673-00

PATIENT
  Age: 41 None
  Sex: Female
  Weight: 92.62 kg

DRUGS (9)
  1. HUMIRA 40 MG/0.8 ML PEN [Suspect]
     Indication: ANKYLOSING SPONDYLITIS
     Route: 058
     Dates: start: 200501, end: 201204
  2. HUMIRA 40 MG/0.8 ML PEN [Suspect]
     Indication: CROHN^S DISEASE
  3. PRILOSEC [Concomitant]
     Indication: GASTRIC DISORDER
  4. TRAMADOL [Concomitant]
     Indication: ANKYLOSING SPONDYLITIS
  5. ALBUTEROL [Concomitant]
     Indication: ASTHMA
  6. TYLENOL [Concomitant]
     Indication: ANKYLOSING SPONDYLITIS
  7. VITAMIN D [Concomitant]
     Indication: VITAMIN SUPPLEMENTATION
  8. ELAVIL [Concomitant]
     Indication: DEPRESSION
  9. IMODIUM [Concomitant]
     Indication: CROHN^S DISEASE

REACTIONS (11)
  - Bladder hypertrophy [Not Recovered/Not Resolved]
  - Vaginal haemorrhage [Not Recovered/Not Resolved]
  - Gastrointestinal infection [Recovered/Resolved]
  - Urinary tract infection [Recovered/Resolved]
  - Sinusitis [Not Recovered/Not Resolved]
  - Red blood cell sedimentation rate increased [Not Recovered/Not Resolved]
  - C-reactive protein increased [Not Recovered/Not Resolved]
  - Pancreatitis [Not Recovered/Not Resolved]
  - Inflammation [Not Recovered/Not Resolved]
  - Anaemia [Not Recovered/Not Resolved]
  - Blood iron decreased [Recovered/Resolved]
